FAERS Safety Report 20090359 (Version 1)
Quarter: 2021Q4

REPORT INFORMATION
  Report Type: Spontaneous
  Country: US (occurrence: None)
  Receive Date: 20211118
  Receipt Date: 20211118
  Transmission Date: 20220304
  Serious: Yes (Life-Threatening, Hospitalization)
  Sender: FDA-Public Use
  Company Number: None

PATIENT
  Age: 80 Year
  Sex: Female
  Weight: 52.65 kg

DRUGS (10)
  1. JAKAFI [Suspect]
     Active Substance: RUXOLITINIB
     Indication: Janus kinase 2 mutation
     Dosage: OTHER QUANTITY : 1 TABLET(S);?FREQUENCY : TWICE A DAY;?
     Route: 048
     Dates: start: 20210215, end: 20210601
  2. JAKAFI [Suspect]
     Active Substance: RUXOLITINIB
     Indication: Myeloproliferative neoplasm
  3. BYSTOLIC [Concomitant]
  4. AMLODIPINE BESYLATE [Concomitant]
     Active Substance: AMLODIPINE BESYLATE
  5. LANTUS SOLOSTAR [Concomitant]
  6. ROSUVASTATIN CALCIUM [Concomitant]
  7. FISH OIL [Concomitant]
  8. CRANBERRY CAPS [Concomitant]
  9. MULTIVITAMIN [Concomitant]
  10. ASPIRIN [Concomitant]
     Active Substance: ASPIRIN

REACTIONS (7)
  - Anaemia [None]
  - General physical health deterioration [None]
  - Dyspnoea [None]
  - Asthenia [None]
  - Squamous cell carcinoma of lung [None]
  - Pneumothorax [None]
  - Procedural complication [None]

NARRATIVE: CASE EVENT DATE: 20210503
